FAERS Safety Report 9760550 (Version 1)
Quarter: 2013Q4

REPORT INFORMATION
  Report Type: Spontaneous
  Country: US (occurrence: US)
  Receive Date: 20131216
  Receipt Date: 20131216
  Transmission Date: 20140711
  Serious: No
  Sender: FDA-Public Use
  Company Number: US-BIOGENIDEC-2013BI101406

PATIENT
  Sex: Female

DRUGS (7)
  1. TECFIDERA [Suspect]
     Indication: MULTIPLE SCLEROSIS
     Route: 048
     Dates: start: 201308
  2. ZOLOFT [Concomitant]
  3. OXYBUTYNIN CL ER [Concomitant]
  4. BUPROPION HCL [Concomitant]
  5. IBUPROFEN [Concomitant]
  6. ARICEPT [Concomitant]
  7. AMPYRA [Concomitant]

REACTIONS (3)
  - Fatigue [Unknown]
  - Gait disturbance [Unknown]
  - Mobility decreased [Unknown]
